FAERS Safety Report 4994824-X (Version None)
Quarter: 2006Q2

REPORT INFORMATION
  Report Type: 
  Country: None (occurrence: None)
  Receive Date: 20060508
  Receipt Date: 20050926
  Transmission Date: 20061013
  Serious: Yes (Other)
  Sender: FDA-Public Use
  Company Number: PHEH2005US10711

PATIENT
  Age: 52 Year
  Sex: Female

DRUGS (17)
  1. AREDIA [Suspect]
     Indication: BREAST CANCER
     Dosage: 90 MG, UNK
     Dates: start: 20010329, end: 20020305
  2. AREDIA [Suspect]
     Dosage: 30 MG, UNK
     Dates: start: 20021016, end: 20030730
  3. AREDIA [Suspect]
     Dosage: 60 MG, UNK
     Dates: start: 20030820, end: 20050518
  4. ZOMETA [Suspect]
     Indication: BREAST CANCER
     Dosage: 4 MG, UNK
     Dates: start: 20020327, end: 20020925
  5. HERCEPTIN [Concomitant]
     Indication: BREAST CANCER RECURRENT
     Dosage: 220 UNK, UNK
  6. EPOETIN NOS [Concomitant]
     Indication: ANAEMIA
     Dosage: 40 UNK, UNK
  7. VITAMIN B-12 [Concomitant]
     Indication: ANAEMIA
     Dosage: 2000 UG, UNK
  8. TAMOXIFEN CITRATE [Concomitant]
     Indication: BREAST CANCER
     Dates: start: 20000101, end: 20050201
  9. ARIMIDEX [Concomitant]
     Indication: BREAST CANCER
  10. ROCEPHIN [Concomitant]
  11. DIFLUCAN [Concomitant]
  12. PAXIL [Concomitant]
     Indication: DEPRESSION
     Dosage: 20 MG, UNK
  13. WELLBUTRIN [Concomitant]
     Indication: DEPRESSION
     Dosage: 150 MG, UNK
  14. AMBIEN [Concomitant]
     Indication: SLEEP DISORDER
  15. TYLENOL (CAPLET) [Concomitant]
     Indication: ARTHRALGIA
  16. KLONOPIN [Concomitant]
     Indication: SLEEP DISORDER
     Dosage: 0.5 MG, QHS
  17. ANZEMET [Concomitant]
     Indication: PROPHYLAXIS OF NAUSEA AND VOMITING

REACTIONS (22)
  - BONE DENSITY DECREASED [None]
  - BONE SCAN ABNORMAL [None]
  - DENTAL CARIES [None]
  - ENDODONTIC PROCEDURE [None]
  - EXOSTOSIS [None]
  - HYPERBARIC OXYGEN THERAPY [None]
  - IMPAIRED HEALING [None]
  - INFLAMMATION [None]
  - JAW FRACTURE [None]
  - LYMPHADENOPATHY [None]
  - ORAL PAIN [None]
  - OSTEOMYELITIS [None]
  - POOR PERIPHERAL CIRCULATION [None]
  - PULPITIS DENTAL [None]
  - PYREXIA [None]
  - RADIATION INJURY [None]
  - SENSITIVITY OF TEETH [None]
  - SINUS DISORDER [None]
  - SURGERY [None]
  - SWELLING [None]
  - TOOTH EXTRACTION [None]
  - WOUND DEBRIDEMENT [None]
